FAERS Safety Report 5574982-9 (Version None)
Quarter: 2007Q4

REPORT INFORMATION
  Report Type: 
  Country: None (occurrence: None)
  Receive Date: 20071227
  Receipt Date: 20071218
  Transmission Date: 20080405
  Serious: Yes (Hospitalization)
  Sender: FDA-Public Use
  Company Number: B0500830A

PATIENT
  Age: 42 Year
  Sex: Male

DRUGS (5)
  1. COMBIVIR [Suspect]
     Indication: DRUG USE FOR UNKNOWN INDICATION
     Dosage: 1TAB TWICE PER DAY
     Route: 048
     Dates: start: 20070611, end: 20070904
  2. BACTRIM DS [Suspect]
     Indication: TOXOPLASMA SEROLOGY POSITIVE
     Dosage: 1TAB PER DAY
     Route: 048
  3. KALETRA [Concomitant]
     Dosage: 2TAB TWICE PER DAY
     Route: 048
     Dates: start: 20070611
  4. IMOVANE [Concomitant]
     Dosage: 1TAB AT NIGHT
     Route: 048
     Dates: start: 20070613
  5. BICARBONATE [Concomitant]
     Route: 002

REACTIONS (5)
  - ANAEMIA MACROCYTIC [None]
  - ANAEMIA MEGALOBLASTIC [None]
  - FOLATE DEFICIENCY [None]
  - HAEMATOTOXICITY [None]
  - VITAMIN B12 DEFICIENCY [None]
